FAERS Safety Report 8593548-X (Version None)
Quarter: 2012Q3

REPORT INFORMATION
  Report Type: 
  Country: None (occurrence: None)
  Receive Date: 20120814
  Receipt Date: 20120809
  Transmission Date: 20120928
  Serious: Yes (Other)
  Sender: FDA-Public Use
  Company Number: JP-VERTEX PHARMACEUTICALS INC.-AE-2012-007670

PATIENT
  Age: 44 Year
  Sex: Female

DRUGS (8)
  1. TELAVIC [Suspect]
     Indication: HEPATITIS C
     Route: 048
     Dates: start: 20120216, end: 20120225
  2. REBETOL [Concomitant]
     Indication: HEPATITIS C
     Route: 048
     Dates: start: 20120216, end: 20120304
  3. REBETOL [Concomitant]
     Route: 048
     Dates: start: 20120305, end: 20120425
  4. REBETOL [Concomitant]
     Route: 048
     Dates: start: 20120426
  5. PEGINTERFERON ALFA-2B [Concomitant]
     Indication: HEPATITIS C
     Route: 051
     Dates: start: 20120216
  6. TELAVIC [Suspect]
     Route: 048
     Dates: start: 20120226, end: 20120329
  7. FAMOTIDINE [Concomitant]
     Route: 048
     Dates: end: 20120411
  8. MUCOSTA [Concomitant]
     Route: 048
     Dates: start: 20120412

REACTIONS (1)
  - WHITE BLOOD CELL COUNT DECREASED [None]
